FAERS Safety Report 4342812-9 (Version None)
Quarter: 2004Q2

REPORT INFORMATION
  Report Type: 
  Country: None (occurrence: None)
  Receive Date: 20040416
  Receipt Date: 20040331
  Transmission Date: 20050107
  Serious: Yes (Hospitalization, Other)
  Sender: FDA-Public Use
  Company Number: EM2004-0180

PATIENT
  Age: 3 Year
  Sex: Female

DRUGS (14)
  1. TOBI [Suspect]
     Indication: LUNG INFECTION PSEUDOMONAL
     Dosage: 300 MG, BID, INHALATION
     Route: 055
     Dates: start: 20031126
  2. TOBRAMYCIN [Suspect]
     Indication: LUNG INFECTION PSEUDOMONAL
     Dosage: 200 MG, QD, INTRAVENOUS
     Route: 042
     Dates: start: 20031114, end: 20031125
  3. TOBRAMYCIN [Suspect]
     Indication: LUNG INFECTION PSEUDOMONAL
     Dosage: 200 MG, QD, INTRAVENOUS
     Route: 042
     Dates: start: 20031128
  4. TIMENTIN [Concomitant]
  5. PANCREATIC ENZYMES [Concomitant]
  6. SALT TABLETS (SODIUM CHLORIDE) [Concomitant]
  7. VITAMIN E/K [Concomitant]
  8. SORBITOL (SORBITOL) [Concomitant]
  9. GLUCO-LYTE (SODIUM CHLORIDE, POTASSIUM CHLORIDE, SODIUM BICARBONATE, G [Concomitant]
  10. FLIXOTIDE (FLUTICASONE PROPIONATE) [Concomitant]
  11. VENTOLIN [Concomitant]
  12. HYPERTONIC SALINE [Concomitant]
  13. LOSEC (OMEPRAZOLE) [Concomitant]
  14. PENTA-VITE CHILDRENS VITAMINS (VITAMINS NOS, MINERALS NOS) [Concomitant]

REACTIONS (2)
  - DRUG LEVEL INCREASED [None]
  - MEDICATION ERROR [None]
